FAERS Safety Report 4446314-0 (Version None)
Quarter: 2004Q3

REPORT INFORMATION
  Report Type: 
  Country: None (occurrence: None)
  Receive Date: 20040907
  Receipt Date: 20040830
  Transmission Date: 20050211
  Serious: Yes (Hospitalization)
  Sender: FDA-Public Use
  Company Number: AZAUS200400076

PATIENT
  Age: 82 Year
  Sex: Male
  Weight: 63 kg

DRUGS (5)
  1. VIDAZA [Suspect]
     Indication: MYELODYSPLASTIC SYNDROME
     Dosage: (127 MG, DAILY X 7 DAYS), SUBCUTANEOUS
     Route: 058
     Dates: start: 20040823, end: 20040825
  2. PROCRIT [Concomitant]
  3. NEUPOGEN [Concomitant]
  4. ZOLOFT [Concomitant]
  5. TARKA (UDRAMIL) [Concomitant]

REACTIONS (5)
  - BLOOD BILIRUBIN INCREASED [None]
  - BLOOD CREATININE INCREASED [None]
  - FEBRILE NEUTROPENIA [None]
  - FEELING ABNORMAL [None]
  - PANCYTOPENIA [None]
